FAERS Safety Report 21945306 (Version 1)
Quarter: 2023Q1

REPORT INFORMATION
  Report Type: Spontaneous
  Country: US (occurrence: None)
  Receive Date: 20230130
  Receipt Date: 20230130
  Transmission Date: 20230417
  Serious: No
  Sender: FDA-Public Use
  Company Number: None

PATIENT
  Sex: Female

DRUGS (3)
  1. CAPECITABINE [Suspect]
     Active Substance: CAPECITABINE
     Dosage: 1000MG BID ORAL?
     Route: 048
  2. ALLOPURINOL [Suspect]
     Active Substance: ALLOPURINOL
  3. LISINOPRIL [Suspect]
     Active Substance: LISINOPRIL

REACTIONS (6)
  - Influenza [None]
  - Labelled drug-drug interaction medication error [None]
  - Drug hypersensitivity [None]
  - Skin discolouration [None]
  - Peripheral swelling [None]
  - Fall [None]
